FAERS Safety Report 5312060-4 (Version None)
Quarter: 2007Q2

REPORT INFORMATION
  Report Type: 
  Country: None (occurrence: None)
  Receive Date: 20070430
  Receipt Date: 20060519
  Transmission Date: 20071010
  Serious: No
  Sender: FDA-Public Use
  Company Number: 2006UW09914

PATIENT
  Age: 40 Year
  Sex: Female
  Weight: 76.2 kg

DRUGS (1)
  1. NEXIUM [Suspect]
     Indication: GASTRITIS
     Route: 048
     Dates: start: 20060501

REACTIONS (3)
  - BLOOD GLUCOSE INCREASED [None]
  - DIZZINESS [None]
  - FATIGUE [None]
